FAERS Safety Report 19005209 (Version 3)
Quarter: 2021Q1

REPORT INFORMATION
  Report Type: Report from Study
  Country: KR (occurrence: KR)
  Receive Date: 20210312
  Receipt Date: 20210324
  Transmission Date: 20210420
  Serious: Yes (Hospitalization)
  Sender: FDA-Public Use
  Company Number: KR-EXELIXIS-XL18421038470

PATIENT

DRUGS (12)
  1. CABOZANTINIB [Suspect]
     Active Substance: CABOZANTINIB
     Indication: METASTATIC RENAL CELL CARCINOMA
     Dosage: 60 MG, QD (THREE TABLET OF 20 MG)
     Route: 048
     Dates: start: 20210216, end: 20210306
  2. PERIOLIMEL N4E [Concomitant]
  3. GASTER [Concomitant]
     Active Substance: FAMOTIDINE
     Indication: GASTRITIS PROPHYLAXIS
  4. STILNOX [Concomitant]
     Active Substance: ZOLPIDEM TARTRATE
     Indication: INSOMNIA
  5. DENOGAN [Concomitant]
     Active Substance: PROPACETAMOL HYDROCHLORIDE
  6. AMORTAN [Concomitant]
     Indication: HYPERTENSION
  7. HYDRALAZINE [Concomitant]
     Active Substance: HYDRALAZINE HYDROCHLORIDE
     Indication: HYPERTENSION
  8. MYPOL [Concomitant]
     Indication: TUMOUR PAIN
  9. DUROGESIC [Concomitant]
     Active Substance: FENTANYL
     Indication: TUMOUR PAIN
  10. ATEZOLIZUMAB. [Suspect]
     Active Substance: ATEZOLIZUMAB
     Indication: METASTATIC RENAL CELL CARCINOMA
     Dosage: 1200 MG, Q3WEEKS
     Route: 042
     Dates: start: 20210216
  11. LIDOCAINE. [Concomitant]
     Active Substance: LIDOCAINE
  12. TARGIN [Concomitant]
     Active Substance: NALOXONE HYDROCHLORIDE\OXYCODONE HYDROCHLORIDE
     Indication: PAIN

REACTIONS (1)
  - Meningitis [Recovering/Resolving]

NARRATIVE: CASE EVENT DATE: 20210306
